FAERS Safety Report 10687401 (Version 1)
Quarter: 2015Q1

REPORT INFORMATION
  Report Type: Spontaneous
  Country: US (occurrence: US)
  Receive Date: 20150102
  Receipt Date: 20150102
  Transmission Date: 20150720
  Serious: Yes (Other)
  Sender: FDA-Public Use
  Company Number: US-SA-2014SA178750

PATIENT
  Sex: Male

DRUGS (1)
  1. MULTAQ [Suspect]
     Active Substance: DRONEDARONE
     Route: 065
     Dates: start: 201412

REACTIONS (1)
  - Gastrointestinal tube insertion [Unknown]

NARRATIVE: CASE EVENT DATE: 20141222
